FAERS Safety Report 8483541 (Version 3)
Quarter: 2012Q4

REPORT INFORMATION
  Report Type: Report from Study
  Country: JP (occurrence: JP)
  Receive Date: 20120329
  Receipt Date: 20121106
  Transmission Date: 20130627
  Serious: Yes (Death)
  Sender: FDA-Public Use
  Company Number: JP-GLAXOSMITHKLINE-B0791771A

PATIENT
  Age: 73 Year
  Sex: Male

DRUGS (11)
  1. LAMICTAL [Suspect]
     Indication: BIPOLAR II DISORDER
     Dosage: 25MG Per day
     Route: 048
     Dates: start: 20120203, end: 20120217
  2. JZOLOFT [Concomitant]
     Indication: BIPOLAR I DISORDER
     Dosage: 75MG Per day
     Route: 048
     Dates: start: 20111212
  3. AMOBAN [Concomitant]
     Indication: INSOMNIA
     Dosage: 7.5MG Per day
     Route: 048
     Dates: start: 20120224
  4. SEROQUEL [Concomitant]
     Indication: BIPOLAR II DISORDER
     Dosage: 12.5MG Per day
     Route: 048
     Dates: start: 20120213, end: 20120217
  5. SEROQUEL [Concomitant]
     Indication: BIPOLAR II DISORDER
     Dosage: 25MG Per day
     Route: 048
     Dates: start: 20120224
  6. DIAZEPAM [Concomitant]
     Indication: BIPOLAR II DISORDER
     Route: 048
     Dates: start: 20111212
  7. MYSLEE [Concomitant]
     Indication: INSOMNIA
     Route: 048
  8. LEXAPRO [Concomitant]
     Indication: BIPOLAR II DISORDER
     Route: 048
     Dates: start: 20120213, end: 20120217
  9. LIMAS [Concomitant]
     Indication: BIPOLAR II DISORDER
     Route: 048
     Dates: start: 20120213, end: 20120217
  10. ROHYPNOL [Concomitant]
     Indication: INSOMNIA
     Route: 048
     Dates: start: 20120203, end: 20120210
  11. CYMBALTA [Concomitant]
     Indication: BIPOLAR II DISORDER
     Route: 048
     Dates: start: 20120203, end: 20120210

REACTIONS (2)
  - Completed suicide [Fatal]
  - Depression [Fatal]
